FAERS Safety Report 4754001-4 (Version None)
Quarter: 2005Q3

REPORT INFORMATION
  Report Type: 
  Country: None (occurrence: None)
  Receive Date: 20050826
  Receipt Date: 20050211
  Transmission Date: 20060218
  Serious: Yes (Hospitalization)
  Sender: FDA-Public Use
  Company Number: US-MERCK-0502USA01720

PATIENT
  Age: 59 Year
  Sex: Male
  Weight: 80 kg

DRUGS (7)
  1. VIOXX [Suspect]
     Indication: OSTEOARTHRITIS
     Route: 048
     Dates: start: 20020101, end: 20040901
  2. VIOXX [Suspect]
     Route: 048
  3. ZOCOR [Concomitant]
     Indication: BLOOD CHOLESTEROL INCREASED
     Route: 048
     Dates: start: 19980101
  4. ZOCOR [Concomitant]
     Route: 048
  5. LASIX [Concomitant]
     Indication: SWELLING
     Route: 048
  6. WELCHOL [Concomitant]
     Route: 048
  7. ASPIRIN [Concomitant]
     Route: 065
     Dates: start: 19980101

REACTIONS (35)
  - ANAEMIA [None]
  - ANGINA UNSTABLE [None]
  - ARTHRALGIA [None]
  - AZOTAEMIA [None]
  - CARDIAC MURMUR [None]
  - CARPAL TUNNEL DECOMPRESSION [None]
  - CELLULITIS [None]
  - CHEST PAIN [None]
  - CHOLELITHIASIS [None]
  - CORONARY ARTERY DISEASE [None]
  - EAR DISORDER [None]
  - FLUID RETENTION [None]
  - GASTROOESOPHAGEAL REFLUX DISEASE [None]
  - HAEMORRHOIDS [None]
  - HYPERTENSION [None]
  - HYPERTENSIVE HEART DISEASE [None]
  - HYPERTRIGLYCERIDAEMIA [None]
  - HYPOTHYROIDISM [None]
  - JOINT INJURY [None]
  - JOINT SWELLING [None]
  - LUMBAR RADICULOPATHY [None]
  - MITRAL VALVE INCOMPETENCE [None]
  - MYOCARDIAL INFARCTION [None]
  - MYOCARDIAL ISCHAEMIA [None]
  - NEPHROSCLEROSIS [None]
  - OCCULT BLOOD POSITIVE [None]
  - PIRIFORMIS SYNDROME [None]
  - POST LAMINECTOMY SYNDROME [None]
  - PULMONARY HYPERTENSION [None]
  - RENAL FAILURE CHRONIC [None]
  - ROAD TRAFFIC ACCIDENT [None]
  - ROTATOR CUFF SYNDROME [None]
  - SINUSITIS [None]
  - TRICUSPID VALVE INCOMPETENCE [None]
  - VENTRICULAR FIBRILLATION [None]
